FAERS Safety Report 6142202-2 (Version None)
Quarter: 2009Q2

REPORT INFORMATION
  Report Type: 
  Country: None (occurrence: None)
  Receive Date: 20090403
  Receipt Date: 20070606
  Transmission Date: 20091009
  Serious: Yes (Death, Hospitalization, Other)
  Sender: FDA-Public Use
  Company Number: US-ASTRAZENECA-2006UW27636

PATIENT
  Age: 18681 Day
  Sex: Female
  Weight: 68 kg

DRUGS (26)
  1. SEROQUEL [Suspect]
     Indication: DEPRESSION
     Route: 048
     Dates: start: 19990130, end: 20010901
  2. SEROQUEL [Suspect]
     Route: 048
     Dates: start: 20010901, end: 20050824
  3. SEROQUEL [Suspect]
     Dosage: 50 MG - 200 MG
     Route: 048
     Dates: start: 19990126, end: 20050618
  4. ZYPREXA [Concomitant]
     Dosage: 5 MG TO 50 MG
     Route: 048
     Dates: start: 20001221, end: 20031104
  5. AMBIEN [Concomitant]
     Route: 048
     Dates: start: 20010323
  6. WELLBUTRIN [Concomitant]
     Route: 048
     Dates: start: 20020503
  7. TRAZODONE [Concomitant]
     Route: 048
     Dates: start: 19980708
  8. PREDNISONE [Concomitant]
     Route: 048
     Dates: start: 19990902
  9. PREDNISONE [Concomitant]
     Route: 048
     Dates: start: 20010203
  10. PREDNISONE [Concomitant]
     Route: 048
     Dates: start: 20011026
  11. CELEBREX [Concomitant]
     Route: 048
     Dates: start: 20030922
  12. PLAVIX [Concomitant]
     Route: 048
     Dates: start: 20051123
  13. EFFEXOR [Concomitant]
     Route: 048
     Dates: start: 20051216
  14. LEXAPRO [Concomitant]
     Route: 048
     Dates: start: 20061118
  15. SERTRALINE HCL [Concomitant]
     Route: 048
     Dates: start: 20070407
  16. ZOCOR [Concomitant]
     Route: 048
  17. ALLEGRA [Concomitant]
  18. PRILOSEC [Concomitant]
  19. DIOVAN [Concomitant]
  20. PREMARIN [Concomitant]
  21. VIOXX [Concomitant]
  22. THEO-24 [Concomitant]
  23. SINGULAIR [Concomitant]
  24. ATARAX [Concomitant]
  25. PROVENTIL [Concomitant]
  26. SEREVENT [Concomitant]

REACTIONS (44)
  - ANXIETY [None]
  - ASTHENIA [None]
  - ASTHMA [None]
  - BACK PAIN [None]
  - BLOOD CHOLESTEROL INCREASED [None]
  - CELLULITIS [None]
  - CHRONIC OBSTRUCTIVE PULMONARY DISEASE [None]
  - CHRONIC SINUSITIS [None]
  - CORONARY ARTERIAL STENT INSERTION [None]
  - CORONARY ARTERY DISEASE [None]
  - DEATH [None]
  - DELIRIUM [None]
  - DIABETES MELLITUS [None]
  - DIVERTICULUM [None]
  - EPICONDYLITIS [None]
  - GASTRIC ULCER [None]
  - GASTROOESOPHAGEAL REFLUX DISEASE [None]
  - HAEMOLYTIC ANAEMIA [None]
  - HAEMORRHOIDS [None]
  - HYPERGLYCAEMIA [None]
  - HYPERLIPIDAEMIA [None]
  - HYPOAESTHESIA [None]
  - HYPONATRAEMIA [None]
  - INTERMITTENT CLAUDICATION [None]
  - LUMBAR RADICULOPATHY [None]
  - MEMORY IMPAIRMENT [None]
  - MENINGITIS VIRAL [None]
  - MITRAL VALVE DISEASE [None]
  - ORAL CANDIDIASIS [None]
  - PAIN IN EXTREMITY [None]
  - PALPITATIONS [None]
  - PANCREATITIS [None]
  - PATELLOFEMORAL PAIN SYNDROME [None]
  - PHARYNGITIS [None]
  - PLEURISY [None]
  - PNEUMONIA [None]
  - PULMONARY HYPERTENSION [None]
  - RENAL FAILURE ACUTE [None]
  - RHINITIS [None]
  - SACROILIITIS [None]
  - SPINAL OSTEOARTHRITIS [None]
  - TREMOR [None]
  - TRICUSPID VALVE DISEASE [None]
  - TYPE 2 DIABETES MELLITUS [None]
